FAERS Safety Report 6006445-0 (Version None)
Quarter: 2008Q4

REPORT INFORMATION
  Report Type: 
  Country: None (occurrence: None)
  Receive Date: 20081217
  Receipt Date: 20081210
  Transmission Date: 20090506
  Serious: Yes (Other)
  Sender: FDA-Public Use
  Company Number: US-ABBOTT-08P-163-0492278-00

PATIENT
  Sex: Female
  Weight: 45.4 kg

DRUGS (8)
  1. HUMIRA [Suspect]
     Indication: CROHN'S DISEASE
     Route: 058
     Dates: start: 20080501
  2. TIOTROPIUM BROMIDE [Concomitant]
     Indication: CHRONIC OBSTRUCTIVE PULMONARY DISEASE
     Dosage: UNSURE OF DOSE
     Route: 055
  3. VENLAFAXINE HCL [Concomitant]
     Indication: DEPRESSION
     Dosage: UNSURE OF STRENGTH
  4. VALIUM [Concomitant]
     Indication: ANXIETY
     Dosage: UNSURE OF STRENGTH
  5. MESALAMINE [Concomitant]
     Indication: CROHN'S DISEASE
     Dosage: UNSURE OF STRENGTH
  6. ALBUTEROL SULFATE [Concomitant]
     Indication: CHRONIC OBSTRUCTIVE PULMONARY DISEASE
     Dosage: UNSURE OF DOSE
  7. DARVON CPD [Concomitant]
     Indication: PAIN
     Route: 048
  8. VICODIN [Concomitant]
     Indication: PAIN
     Dosage: AS REQUIRED

REACTIONS (1)
  - BREAST CANCER [None]
